FAERS Safety Report 7394632-9 (Version None)
Quarter: 2011Q1

REPORT INFORMATION
  Report Type: 
  Country: None (occurrence: None)
  Receive Date: 20110331
  Receipt Date: 20110331
  Transmission Date: 20110831
  Serious: Yes (Hospitalization)
  Sender: FDA-Public Use
  Company Number: None

PATIENT
  Sex: Male
  Weight: 90.72 kg

DRUGS (1)
  1. TEMOZOLOMIDE [Suspect]
     Dosage: 420 MG
     Dates: end: 20110325

REACTIONS (20)
  - GRANULOCYTE COUNT INCREASED [None]
  - BRAIN OEDEMA [None]
  - HAEMOGLOBIN DECREASED [None]
  - DECEREBRATION [None]
  - CEREBRAL THROMBOSIS [None]
  - RED BLOOD CELL COUNT DECREASED [None]
  - LYMPHOCYTE COUNT DECREASED [None]
  - ANTICONVULSANT DRUG LEVEL BELOW THERAPEUTIC [None]
  - BRAIN MIDLINE SHIFT [None]
  - CEREBRAL HAEMORRHAGE [None]
  - BLOOD SODIUM INCREASED [None]
  - BLOOD GLUCOSE INCREASED [None]
  - BLOOD BICARBONATE INCREASED [None]
  - BLOOD CREATININE INCREASED [None]
  - CONVULSION [None]
  - BLOOD CALCIUM DECREASED [None]
  - BRAIN HERNIATION [None]
  - BLOOD POTASSIUM DECREASED [None]
  - BLOOD CHLORIDE DECREASED [None]
  - HAEMATOCRIT DECREASED [None]
